FAERS Safety Report 8285706-9 (Version None)
Quarter: 2012Q2

REPORT INFORMATION
  Report Type: 
  Country: None (occurrence: None)
  Receive Date: 20120413
  Receipt Date: 20120404
  Transmission Date: 20120825
  Serious: Yes (Other)
  Sender: FDA-Public Use
  Company Number: AR-ROCHE-1047433

PATIENT
  Sex: Male

DRUGS (2)
  1. LUCENTIS [Suspect]
     Indication: RETINAL VASCULAR THROMBOSIS
     Dates: start: 20110101
  2. LUCENTIS [Suspect]
     Dates: start: 20110101

REACTIONS (2)
  - DRUG INEFFECTIVE [None]
  - BLINDNESS UNILATERAL [None]
